FAERS Safety Report 18576721 (Version 1)
Quarter: 2020Q4

REPORT INFORMATION
  Report Type: Spontaneous
  Country: US (occurrence: US)
  Receive Date: 20201203
  Receipt Date: 20201203
  Transmission Date: 20210114
  Serious: Yes (Other)
  Sender: FDA-Public Use
  Company Number: US-COOPERSURGICAL, INC.-US-2020CPS000159

PATIENT
  Age: 32 Year
  Sex: Female
  Weight: 82.54 kg

DRUGS (1)
  1. PARAGARD T 380A [Suspect]
     Active Substance: COPPER
     Indication: CONTRACEPTION
     Dosage: UNK
     Route: 015
     Dates: start: 20200106

REACTIONS (3)
  - Complication of device insertion [Recovered/Resolved]
  - Device defective [Recovered/Resolved]
  - Uterine perforation [Unknown]

NARRATIVE: CASE EVENT DATE: 20200106
